FAERS Safety Report 7406742-8 (Version None)
Quarter: 2011Q2

REPORT INFORMATION
  Report Type: 
  Country: None (occurrence: None)
  Receive Date: 20110406
  Receipt Date: 20110406
  Transmission Date: 20111010
  Serious: Yes (Hospitalization, Other)
  Sender: FDA-Public Use
  Company Number: None

PATIENT

DRUGS (1)
  1. ACCUTANE [Suspect]
     Dosage: 40 MG PER DAY
     Dates: start: 20091201, end: 20100715

REACTIONS (1)
  - DIABETIC KETOACIDOSIS [None]
